FAERS Safety Report 12727023 (Version 3)
Quarter: 2017Q2

REPORT INFORMATION
  Report Type: Spontaneous
  Country: US (occurrence: US)
  Receive Date: 20160909
  Receipt Date: 20170414
  Transmission Date: 20170830
  Serious: Yes (Other)
  Sender: FDA-Public Use
  Company Number: US-ROCHE-1827947

PATIENT
  Age: 37 Year
  Sex: Female
  Weight: 93.07 kg

DRUGS (1)
  1. XOLAIR [Suspect]
     Active Substance: OMALIZUMAB
     Indication: CHRONIC SPONTANEOUS URTICARIA
     Route: 058
     Dates: start: 20160329, end: 20160824

REACTIONS (1)
  - Infection parasitic [Unknown]

NARRATIVE: CASE EVENT DATE: 20160329
